FAERS Safety Report 23543743 (Version 2)
Quarter: 2024Q2

REPORT INFORMATION
  Report Type: Spontaneous
  Country: US (occurrence: US)
  Receive Date: 20240220
  Receipt Date: 20240521
  Transmission Date: 20240716
  Serious: No
  Sender: FDA-Public Use
  Company Number: US-ASTELLAS-2024US002700

PATIENT
  Age: 6 Decade
  Sex: Female

DRUGS (3)
  1. VEOZAH [Suspect]
     Active Substance: FEZOLINETANT
     Indication: Product used for unknown indication
     Dosage: UNK UNK, ONCE DAILY
     Route: 065
  2. VEOZAH [Suspect]
     Active Substance: FEZOLINETANT
     Dosage: UNK UNK, EVERY OTHER DAY
     Route: 065
  3. VEOZAH [Suspect]
     Active Substance: FEZOLINETANT
     Dosage: UNK UNK, EVERY 3 DAYS

REACTIONS (2)
  - Abdominal pain [Unknown]
  - Off label use [Unknown]
